FAERS Safety Report 25382326 (Version 2)
Quarter: 2025Q2

REPORT INFORMATION
  Report Type: Spontaneous
  Country: US (occurrence: US)
  Receive Date: 20250601
  Receipt Date: 20250623
  Transmission Date: 20250716
  Serious: No
  Sender: SANOFI AVENTIS
  Company Number: US-SA-2025SA154732

PATIENT
  Age: 3 Year
  Sex: Male

DRUGS (7)
  1. DUPIXENT [Suspect]
     Active Substance: DUPILUMAB
     Indication: Dermatitis atopic
     Dosage: 200 MG, Q4W
     Route: 058
     Dates: start: 20240605
  2. DUPIXENT [Suspect]
     Active Substance: DUPILUMAB
     Indication: Asthma
  3. CLARITIN [Concomitant]
     Active Substance: LORATADINE
  4. CETIRIZINE HYDROCHLORIDE [Concomitant]
     Active Substance: CETIRIZINE HYDROCHLORIDE
  5. EUCRISA [Concomitant]
     Active Substance: CRISABOROLE
  6. EPINEPHRINE [Concomitant]
     Active Substance: EPINEPHRINE
  7. ALBUTEROL SULFATE [Concomitant]
     Active Substance: ALBUTEROL SULFATE

REACTIONS (10)
  - Discomfort [Unknown]
  - Sleep disorder due to a general medical condition [Unknown]
  - Impaired quality of life [Unknown]
  - Skin irritation [Unknown]
  - Erythema [Unknown]
  - Headache [Unknown]
  - Rash [Unknown]
  - Asthma [Unknown]
  - Sunburn [Unknown]
  - Pruritus [Unknown]
